FAERS Safety Report 16630425 (Version 2)
Quarter: 2019Q3

REPORT INFORMATION
  Report Type: Spontaneous
  Country: US (occurrence: US)
  Receive Date: 20190725
  Receipt Date: 20190728
  Transmission Date: 20191004
  Serious: No
  Sender: FDA-Public Use
  Company Number: US-JNJFOC-20190727864

PATIENT
  Age: 21 Year
  Sex: Male
  Weight: 90.8 kg

DRUGS (1)
  1. MENS ROGAINE EXTRA STRENGTH [Suspect]
     Active Substance: MINOXIDIL
     Indication: ALOPECIA
     Dosage: LESS THAN 1/2 CAP FULL 2X DAILY, (LOT 0298D3A, EXPIRY DATE: 30-SEP-2019.)
     Route: 061

REACTIONS (2)
  - Drug ineffective [Unknown]
  - Application site haemorrhage [Recovered/Resolved]

NARRATIVE: CASE EVENT DATE: 2019
